FAERS Safety Report 20497474 (Version 1)
Quarter: 2022Q1

REPORT INFORMATION
  Report Type: Spontaneous
  Country: US (occurrence: US)
  Receive Date: 20220221
  Receipt Date: 20220221
  Transmission Date: 20220424
  Serious: No
  Sender: FDA-Public Use
  Company Number: US-SA-SAC20220216001434

PATIENT
  Sex: Female

DRUGS (1)
  1. AUBAGIO [Suspect]
     Active Substance: TERIFLUNOMIDE
     Route: 065

REACTIONS (5)
  - Musculoskeletal chest pain [Unknown]
  - Abdominal pain lower [Unknown]
  - Impaired quality of life [Unknown]
  - Decreased appetite [Unknown]
  - Diarrhoea [Unknown]
